FAERS Safety Report 7561715-X (Version None)
Quarter: 2011Q2

REPORT INFORMATION
  Report Type: 
  Country: None (occurrence: None)
  Receive Date: 20110621
  Receipt Date: 20110208
  Transmission Date: 20111010
  Serious: No
  Sender: FDA-Public Use
  Company Number: US-ASTRAZENECA-2010SE49408

PATIENT
  Age: 54 Year
  Sex: Female

DRUGS (5)
  1. SYMBICORT [Suspect]
     Route: 055
  2. NEXIUM [Suspect]
     Route: 048
  3. RHINOCORT [Suspect]
     Route: 045
  4. CALCIUM CARBONATE [Concomitant]
  5. NEXIUM [Suspect]
     Route: 048

REACTIONS (13)
  - DYSPNOEA [None]
  - DRUG INEFFECTIVE [None]
  - DYSPEPSIA [None]
  - HEART RATE INCREASED [None]
  - CHEST PAIN [None]
  - INCREASED UPPER AIRWAY SECRETION [None]
  - PAIN IN EXTREMITY [None]
  - NASAL CONGESTION [None]
  - COUGH [None]
  - ASTHMA [None]
  - GASTROOESOPHAGEAL REFLUX DISEASE [None]
  - MULTIPLE ALLERGIES [None]
  - INCORRECT DOSE ADMINISTERED [None]
